FAERS Safety Report 18307216 (Version 1)
Quarter: 2020Q3

REPORT INFORMATION
  Report Type: Spontaneous
  Country: TW (occurrence: TW)
  Receive Date: 20200924
  Receipt Date: 20200924
  Transmission Date: 20201103
  Serious: Yes (Other)
  Sender: FDA-Public Use
  Company Number: TW-TAKEDA-2020TUS039899

PATIENT
  Age: 74 Year
  Sex: Male

DRUGS (1)
  1. BORTEZOMIB. [Suspect]
     Active Substance: BORTEZOMIB
     Indication: MANTLE CELL LYMPHOMA
     Dosage: 2.2 MILLIGRAM
     Route: 058
     Dates: start: 20160524, end: 20160708

REACTIONS (7)
  - Aortic aneurysm [Unknown]
  - Ecchymosis [Unknown]
  - Varicose vein [Unknown]
  - Thrombocytopenia [Unknown]
  - Hypoaesthesia [Unknown]
  - Infection [Unknown]
  - Oedema peripheral [Unknown]

NARRATIVE: CASE EVENT DATE: 20160712
